FAERS Safety Report 5491821-5 (Version None)
Quarter: 2007Q4

REPORT INFORMATION
  Report Type: 
  Country: None (occurrence: None)
  Receive Date: 20071018
  Receipt Date: 20071004
  Transmission Date: 20080405
  Serious: Yes (Other)
  Sender: FDA-Public Use
  Company Number: 2007-03797

PATIENT
  Sex: Female
  Weight: 68 kg

DRUGS (3)
  1. LORAZEPAM [Suspect]
     Indication: ANXIETY
     Dosage: 1-2 MG, TID-QID
     Dates: start: 20060201
  2. VITAMINS [Concomitant]
  3. CALCIUM [Concomitant]

REACTIONS (20)
  - BLOOD SODIUM DECREASED [None]
  - BLOOD SODIUM INCREASED [None]
  - BREAST SWELLING [None]
  - CEREBROVASCULAR ACCIDENT [None]
  - CONSTIPATION [None]
  - CONVULSION [None]
  - DEAFNESS [None]
  - DRUG INEFFECTIVE [None]
  - ELECTROENCEPHALOGRAM ABNORMAL [None]
  - FLUID RETENTION [None]
  - GASTROINTESTINAL INFLAMMATION [None]
  - GASTROINTESTINAL OBSTRUCTION [None]
  - HYPERTENSION [None]
  - MIDDLE EAR EFFUSION [None]
  - MUSCLE DISORDER [None]
  - MUSCLE SPASMS [None]
  - MYALGIA [None]
  - MYOCARDIAL INFARCTION [None]
  - OBSTRUCTION GASTRIC [None]
  - SOMNOLENCE [None]
